FAERS Safety Report 23459125 (Version 1)
Quarter: 2024Q1

REPORT INFORMATION
  Report Type: Spontaneous
  Country: NL (occurrence: NL)
  Receive Date: 20240131
  Receipt Date: 20240131
  Transmission Date: 20240409
  Serious: Yes (Life-Threatening)
  Sender: FDA-Public Use
  Company Number: None

PATIENT

DRUGS (1)
  1. ALBUTEROL [Suspect]
     Active Substance: ALBUTEROL
     Indication: Asthma
     Dosage: 3200 ?G, 8X400MCG (AND MORE)
     Route: 065
     Dates: start: 20221201, end: 20240118

REACTIONS (2)
  - Drug ineffective [Unknown]
  - Product substitution issue [Unknown]
